FAERS Safety Report 5523324-3 (Version None)
Quarter: 2007Q4

REPORT INFORMATION
  Report Type: 
  Country: None (occurrence: None)
  Receive Date: 20071121
  Receipt Date: 20071119
  Transmission Date: 20080405
  Serious: Yes (Hospitalization)
  Sender: FDA-Public Use
  Company Number: A0694563A

PATIENT
  Age: 65 Year
  Sex: Female
  Weight: 121.1 kg

DRUGS (6)
  1. AVANDAMET [Suspect]
     Route: 048
     Dates: start: 20070222
  2. LOVENOX [Concomitant]
     Route: 058
     Dates: end: 20071109
  3. COUMADIN [Concomitant]
     Dosage: 7.5MG PER DAY
     Route: 048
     Dates: start: 20071110, end: 20071112
  4. COUMADIN [Concomitant]
     Dosage: 2.5MG THREE TIMES PER WEEK
     Route: 048
     Dates: start: 20071113
  5. COUMADIN [Concomitant]
     Dosage: 2MG THREE TIMES PER WEEK
     Route: 048
     Dates: start: 20071113
  6. METOPROLOL [Concomitant]
     Dosage: 25MG TWICE PER DAY
     Route: 048

REACTIONS (5)
  - ATRIAL FIBRILLATION [None]
  - DIZZINESS [None]
  - HYPOAESTHESIA [None]
  - ISCHAEMIC STROKE [None]
  - PAIN [None]
